FAERS Safety Report 15474512 (Version 1)
Quarter: 2018Q4

REPORT INFORMATION
  Report Type: Report from Study
  Country: None (occurrence: PR)
  Receive Date: 20181008
  Receipt Date: 20181008
  Transmission Date: 20190205
  Serious: Yes (Hospitalization)
  Sender: FDA-Public Use
  Company Number: PR-ABBVIE-18K-131-2509670-00

PATIENT
  Sex: Female

DRUGS (1)
  1. HUMIRA [Suspect]
     Active Substance: ADALIMUMAB
     Indication: PSORIASIS
     Route: 058

REACTIONS (3)
  - Hypotension [Unknown]
  - Dyspepsia [Unknown]
  - Diverticulitis [Unknown]
